FAERS Safety Report 9132439 (Version 2)
Quarter: 2013Q2

REPORT INFORMATION
  Report Type: Spontaneous
  Country: US (occurrence: US)
  Receive Date: 20130301
  Receipt Date: 20130423
  Transmission Date: 20140414
  Serious: Yes (Hospitalization, Other)
  Sender: FDA-Public Use
  Company Number: US-AMGEN-USASP2013012393

PATIENT
  Age: 70 Year
  Sex: Female

DRUGS (6)
  1. PROLIA [Suspect]
     Indication: OSTEOPOROSIS POSTMENOPAUSAL
     Dosage: UNK
     Dates: start: 201209
  2. CALCIUM [Concomitant]
     Dosage: UNK UNK, BID
  3. TRAMADOL [Concomitant]
     Indication: RESTLESS LEGS SYNDROME
     Dosage: UNK UNK, QD
  4. CENTRUM                            /02217401/ [Concomitant]
     Dosage: UNK UNK, QD
  5. XANAX [Concomitant]
     Dosage: 2 MG, QHS
  6. LISINOPRIL [Concomitant]
     Dosage: 20 MG, UNK

REACTIONS (4)
  - Thyroid cancer [Unknown]
  - Bladder prolapse [Unknown]
  - Swollen tongue [Recovered/Resolved]
  - Speech disorder [Recovered/Resolved]
